FAERS Safety Report 11338222 (Version 2)
Quarter: 2015Q3

REPORT INFORMATION
  Report Type: Spontaneous
  Country: None (occurrence: US)
  Receive Date: 20150803
  Receipt Date: 20150821
  Transmission Date: 20151125
  Serious: No
  Sender: FDA-Public Use
  Company Number: US-ELI_LILLY_AND_COMPANY-US200612001163

PATIENT
  Sex: Female

DRUGS (5)
  1. IRON [Concomitant]
     Active Substance: IRON
  2. CYMBALTA [Suspect]
     Active Substance: DULOXETINE HYDROCHLORIDE
     Indication: MAJOR DEPRESSION
     Dosage: 60 MG, DAILY (1/D)
     Route: 048
     Dates: start: 200408, end: 20070601
  3. SEROQUEL [Concomitant]
     Active Substance: QUETIAPINE FUMARATE
     Indication: PSYCHOTIC DISORDER
     Dosage: 600 MG, DAILY (1/D)
     Dates: start: 2002, end: 20070618
  4. STRATTERA [Suspect]
     Active Substance: ATOMOXETINE HYDROCHLORIDE
  5. PRENATAL VITAMINS                  /01549301/ [Concomitant]
     Active Substance: VITAMINS

REACTIONS (2)
  - Exposure during pregnancy [Unknown]
  - Gestational diabetes [Unknown]

NARRATIVE: CASE EVENT DATE: 2006
